FAERS Safety Report 6682615-3 (Version None)
Quarter: 2010Q2

REPORT INFORMATION
  Report Type: 
  Country: None (occurrence: None)
  Receive Date: 20100414
  Receipt Date: 20100414
  Transmission Date: 20101027
  Serious: Yes (Other)
  Sender: FDA-Public Use
  Company Number: None

PATIENT
  Age: 43 Year
  Sex: Female
  Weight: 45.3597 kg

DRUGS (2)
  1. AVELOX [Suspect]
     Indication: PNEUMONIA
     Dosage: ONCE DAILY PO
     Route: 048
     Dates: start: 20100402, end: 20100408
  2. PREDNISONE [Suspect]
     Indication: PNEUMONIA
     Dosage: AS DIRECTED IN PACKAGE DAILY PO
     Route: 048
     Dates: start: 20100402, end: 20100408

REACTIONS (7)
  - HYPOAESTHESIA [None]
  - MUSCLE DISORDER [None]
  - MUSCULAR WEAKNESS [None]
  - MYALGIA [None]
  - PARAESTHESIA [None]
  - TENDON DISORDER [None]
  - TENDON PAIN [None]
